FAERS Safety Report 13215084 (Version 2)
Quarter: 2017Q1

REPORT INFORMATION
  Report Type: Spontaneous
  Country: US (occurrence: US)
  Receive Date: 20170210
  Receipt Date: 20170322
  Transmission Date: 20170428
  Serious: No
  Sender: FDA-Public Use
  Company Number: US-PFIZER INC-2017061377

PATIENT
  Age: 75 Year
  Sex: Male

DRUGS (2)
  1. LATANOPROST. [Suspect]
     Active Substance: LATANOPROST
     Indication: GLAUCOMA
     Dosage: 1 GTT, DAILY (1 DROP IN BOTH EYES EVERY EVENING)
     Route: 047
     Dates: start: 20150225
  2. LATANOPROST. [Suspect]
     Active Substance: LATANOPROST
     Dosage: 1 GTT, DAILY(1 DROP IN BOTH EYES)
     Route: 047

REACTIONS (1)
  - Eye pain [Recovered/Resolved]
